FAERS Safety Report 25649131 (Version 2)
Quarter: 2025Q3

REPORT INFORMATION
  Report Type: Report from Study
  Country: US (occurrence: US)
  Receive Date: 20250806
  Receipt Date: 20250905
  Transmission Date: 20251020
  Serious: Yes (Hospitalization)
  Sender: AVADEL CNS PHARMACEUTICALS, LLC
  Company Number: US-AVADEL CNS PHARMACEUTICALS, LLC-2025AVA01904

PATIENT
  Sex: Female
  Weight: 50.08 kg

DRUGS (12)
  1. LUMRYZ [Suspect]
     Active Substance: SODIUM OXYBATE
     Indication: Narcolepsy
     Dosage: 7.5 G, ONCE NIGHTLY
     Route: 048
     Dates: start: 20250521, end: 2025
  2. LUMRYZ [Suspect]
     Active Substance: SODIUM OXYBATE
     Dosage: 7.5 G, ONCE NIGHTLY
     Route: 048
     Dates: start: 2025, end: 20250703
  3. LUMRYZ [Suspect]
     Active Substance: SODIUM OXYBATE
     Indication: Narcolepsy
     Dosage: 6 G, ONCE NIGHTLY AT BEDTIME
     Route: 048
     Dates: start: 2025, end: 2025
  4. SUNOSI [Suspect]
     Active Substance: SOLRIAMFETOL
     Indication: Narcolepsy
     Dosage: 150 MG EVERY MORNING
     Route: 048
     Dates: end: 20250606
  5. KEPPRA [Concomitant]
     Active Substance: LEVETIRACETAM
     Dosage: 750 MG, 2X/DAY
     Route: 048
     Dates: end: 202506
  6. KEPPRA [Concomitant]
     Active Substance: LEVETIRACETAM
     Dates: start: 20250606, end: 20250606
  7. KEPPRA [Concomitant]
     Active Substance: LEVETIRACETAM
     Dosage: 375 MG (3.75 MLS OF 100 MG/ML ORAL SOLUTION OR 0.5 TABLET OF 750 MG TABLET), 2X/DAY
     Route: 048
     Dates: start: 202506
  8. VYVANSE [Concomitant]
     Active Substance: LISDEXAMFETAMINE DIMESYLATE
     Dosage: 20 MG (2 CAPSULES) IN THE MORNING AT 8:00 AM AND 10 MG (1 CAPSULE) IN THE AFTERNOON AT 2:00 PM
     Route: 048
  9. LEVOTHYROXINE SODIUM [Concomitant]
     Active Substance: LEVOTHYROXINE SODIUM
     Dosage: 75 ?G (1 TABLET) EVERY MORNING BEFORE BREAKFAST
     Route: 048
  10. DDAVP [Concomitant]
     Active Substance: DESMOPRESSIN ACETATE
     Route: 048
  11. MELATONIN [Concomitant]
     Active Substance: MELATONIN
     Dosage: 3 MG (1 TABLET) ONCE NIGHTLY AT BEDTIME
     Route: 048
  12. POLYETHYLENE GLYCOL 3350 [Concomitant]
     Active Substance: POLYETHYLENE GLYCOL 3350
     Dosage: 17 G, ONCE NIGHTLY AT BEDTIME
     Route: 048

REACTIONS (7)
  - Seizure [Recovered/Resolved]
  - Partial seizures [Recovered/Resolved]
  - Parainfluenzae virus infection [Recovering/Resolving]
  - Sleep terror [Unknown]
  - Malnutrition [Unknown]
  - Asthenia [Recovering/Resolving]
  - Enuresis [Unknown]

NARRATIVE: CASE EVENT DATE: 20250101
